FAERS Safety Report 11521532 (Version 1)
Quarter: 2015Q3

REPORT INFORMATION
  Report Type: Spontaneous
  Country: US (occurrence: None)
  Receive Date: 20150917
  Receipt Date: 20150917
  Transmission Date: 20151125
  Serious: Yes (Hospitalization)
  Sender: FDA-Public Use
  Company Number: None

PATIENT
  Age: 68 Year
  Sex: Male
  Weight: 60 kg

DRUGS (2)
  1. LEUPROLIDE ACETATE. [Suspect]
     Active Substance: LEUPROLIDE ACETATE
     Dates: end: 20150721
  2. CASODEX [Suspect]
     Active Substance: BICALUTAMIDE
     Dates: end: 20150522

REACTIONS (9)
  - Presyncope [None]
  - Syncope [None]
  - Vertigo [None]
  - Fall [None]
  - Productive cough [None]
  - Atrial fibrillation [None]
  - Dizziness [None]
  - Tunnel vision [None]
  - Altered state of consciousness [None]

NARRATIVE: CASE EVENT DATE: 20150905
